FAERS Safety Report 13929189 (Version 1)
Quarter: 2017Q3

REPORT INFORMATION
  Report Type: Spontaneous
  Country: NL (occurrence: NL)
  Receive Date: 20170901
  Receipt Date: 20170901
  Transmission Date: 20171127
  Serious: Yes (Other)
  Sender: FDA-Public Use
  Company Number: NL-APOTEX-2017AP017426

PATIENT
  Sex: Male

DRUGS (4)
  1. OLANZAPINE APOTEX [Suspect]
     Active Substance: OLANZAPINE
     Indication: MANIA
     Route: 065
  2. PREDNISOLONE. [Suspect]
     Active Substance: PREDNISOLONE
     Dosage: 20 MG, UNK
     Route: 065
  3. HALOPERIDOL. [Concomitant]
     Active Substance: HALOPERIDOL
     Indication: PSYCHIATRIC SYMPTOM
     Route: 065
  4. PREDNISOLONE. [Suspect]
     Active Substance: PREDNISOLONE
     Indication: GRAFT VERSUS HOST DISEASE
     Dosage: UNK
     Route: 065

REACTIONS (5)
  - Mania [Unknown]
  - Gait disturbance [Unknown]
  - Depression [Unknown]
  - Dystonia [Recovered/Resolved]
  - Drug effect incomplete [Unknown]
